FAERS Safety Report 10504843 (Version 2)
Quarter: 2014Q4

REPORT INFORMATION
  Report Type: Spontaneous
  Country: US (occurrence: None)
  Receive Date: 20140929
  Receipt Date: 20141224
  Transmission Date: 20150528
  Serious: Yes (Hospitalization)
  Sender: FDA-Public Use
  Company Number: US-2014-11997

PATIENT
  Age: 29 Year
  Sex: Male
  Weight: 95.7 kg

DRUGS (8)
  1. DEPAKOTE [Concomitant]
     Active Substance: DIVALPROEX SODIUM
  2. VALIUM [Concomitant]
     Active Substance: DIAZEPAM
  3. ABILIFY MAINTENA [Suspect]
     Active Substance: ARIPIPRAZOLE
     Indication: PANIC ATTACK
     Dosage: 400 MG MILLIGRAM(S), Q 4 WEEKS, IM (DEPOT)?
     Route: 030
     Dates: start: 20140523
  4. ABILIFY MAINTENA [Suspect]
     Active Substance: ARIPIPRAZOLE
     Indication: GENERALISED ANXIETY DISORDER
     Dosage: 400 MG MILLIGRAM(S), Q 4 WEEKS, IM (DEPOT)?
     Route: 030
     Dates: start: 20140523
  5. ABILIFY MAINTENA [Suspect]
     Active Substance: ARIPIPRAZOLE
     Indication: BIPOLAR I DISORDER
     Dosage: 400 MG MILLIGRAM(S), Q 4 WEEKS, IM (DEPOT)?
     Route: 030
     Dates: start: 20140523
  6. CELEXA [Concomitant]
     Active Substance: CITALOPRAM HYDROBROMIDE
  7. ABILIFY MAINTENA [Suspect]
     Active Substance: ARIPIPRAZOLE
     Indication: SCHIZOAFFECTIVE DISORDER
     Dosage: 400 MG MILLIGRAM(S), Q 4 WEEKS, IM (DEPOT)?
     Route: 030
     Dates: start: 20140523
  8. ABILIFY MAINTENA [Suspect]
     Active Substance: ARIPIPRAZOLE
     Indication: SCHIZOPHRENIA
     Dosage: 400 MG MILLIGRAM(S), Q 4 WEEKS, IM (DEPOT)?
     Route: 030
     Dates: start: 20140523

REACTIONS (2)
  - Suicidal ideation [None]
  - Drug abuse [None]

NARRATIVE: CASE EVENT DATE: 201408
